FAERS Safety Report 7921820-2 (Version None)
Quarter: 2011Q4

REPORT INFORMATION
  Report Type: 
  Country: None (occurrence: None)
  Receive Date: 20111117
  Receipt Date: 20111108
  Transmission Date: 20120403
  Serious: Yes (Other)
  Sender: FDA-Public Use
  Company Number: US-ASTRAZENECA-2009SE28726

PATIENT
  Age: 25401 Day
  Sex: Female

DRUGS (6)
  1. CRESTOR [Suspect]
     Indication: BLOOD CHOLESTEROL ABNORMAL
     Route: 048
  2. TAXOL [Suspect]
     Route: 065
     Dates: start: 20010101
  3. TOPROL-XL [Suspect]
     Indication: HYPERTENSION
     Route: 048
  4. CYTOXAN [Suspect]
     Route: 065
     Dates: start: 20010101
  5. ADRIAMYCIN PFS [Suspect]
     Route: 065
     Dates: start: 20010101
  6. ARIMIDEX [Suspect]
     Route: 048

REACTIONS (13)
  - NEOPLASM PROGRESSION [None]
  - CONTUSION [None]
  - INFLUENZA [None]
  - LIMB INJURY [None]
  - CARDIAC DISORDER [None]
  - PSORIASIS [None]
  - TOOTH EXTRACTION [None]
  - NEUROPATHY PERIPHERAL [None]
  - FALL [None]
  - EAR CONGESTION [None]
  - NODULE [None]
  - STRESS [None]
  - DIABETES MELLITUS [None]
